FAERS Safety Report 8018466-7 (Version None)
Quarter: 2012Q1

REPORT INFORMATION
  Report Type: 
  Country: None (occurrence: None)
  Receive Date: 20120103
  Receipt Date: 20111228
  Transmission Date: 20120608
  Serious: Yes (Other)
  Sender: FDA-Public Use
  Company Number: US-ASTRAZENECA-2009SE32737

PATIENT
  Age: 491 Month
  Sex: Female
  Weight: 85.3 kg

DRUGS (16)
  1. SEROQUEL [Suspect]
     Indication: BIPOLAR DISORDER
     Route: 048
     Dates: start: 20090101, end: 20090901
  2. PROZAC [Concomitant]
     Dates: start: 20050101
  3. SEROQUEL [Suspect]
     Route: 048
     Dates: start: 20090317
  4. XANAX [Concomitant]
  5. ROBAXIN [Concomitant]
  6. KLONOPIN [Concomitant]
  7. SEROQUEL [Suspect]
     Route: 048
     Dates: start: 20090317
  8. VICODIN [Concomitant]
  9. SEROQUEL [Suspect]
     Indication: DEPRESSION
     Route: 048
     Dates: start: 20090101, end: 20090901
  10. LORATADINE [Concomitant]
     Route: 048
     Dates: start: 20091001
  11. ZOLPIDEM [Concomitant]
  12. LAMICTAL [Concomitant]
     Dates: start: 20090101
  13. CLONIDINE / CATAPRES [Concomitant]
  14. ESTROGENIC SUBSTANCE [Concomitant]
  15. ABILIFY [Concomitant]
     Dates: start: 20091001
  16. PRILOSEC [Concomitant]

REACTIONS (7)
  - NEUROPATHY PERIPHERAL [None]
  - TYPE 2 DIABETES MELLITUS [None]
  - NEURALGIA [None]
  - ANKLE FRACTURE [None]
  - SPINAL OSTEOARTHRITIS [None]
  - SPINAL COLUMN STENOSIS [None]
  - INTERVERTEBRAL DISC PROTRUSION [None]
